FAERS Safety Report 10172999 (Version 1)
Quarter: 2014Q2

REPORT INFORMATION
  Report Type: Spontaneous
  Country: US (occurrence: None)
  Receive Date: 20140416
  Receipt Date: 20140416
  Transmission Date: 20141212
  Serious: No
  Sender: FDA-Public Use
  Company Number: 163-POMAL-14020110

PATIENT
  Age: 69 Year
  Sex: Male
  Weight: 103 kg

DRUGS (7)
  1. POMALYST (POMALIDOMIDE) (4 MILLIGRAM, CAPSULES) [Suspect]
     Indication: PLASMA CELL MYELOMA
     Route: 048
     Dates: start: 201401
  2. DEXAMEHTASONE (DEXAMETHASONE) [Concomitant]
  3. LORAZEPAM (LORAZEPAM) [Concomitant]
  4. RITALIN [Concomitant]
  5. VITAMIN B12 (CYANCOBALAMIN) [Concomitant]
  6. COQ10 (UBIDECARENONE) [Concomitant]
  7. MULTIVITAMINS (MULTIVITAMINS) [Concomitant]

REACTIONS (2)
  - Upper respiratory tract congestion [None]
  - Cough [None]
